FAERS Safety Report 7825772-5 (Version None)
Quarter: 2011Q4

REPORT INFORMATION
  Report Type: 
  Country: None (occurrence: None)
  Receive Date: 20111019
  Receipt Date: 20111018
  Transmission Date: 20120403
  Serious: Yes (Death, Hospitalization)
  Sender: FDA-Public Use
  Company Number: PHHY2011CR91673

PATIENT
  Age: 3 Month
  Sex: Female

DRUGS (1)
  1. CATAFLAM [Suspect]
     Dosage: 25 DRP, UNK

REACTIONS (2)
  - DEATH [None]
  - SKIN DISCOLOURATION [None]
